FAERS Safety Report 8236901-6 (Version None)
Quarter: 2012Q1

REPORT INFORMATION
  Report Type: 
  Country: None (occurrence: None)
  Receive Date: 20120327
  Receipt Date: 20120320
  Transmission Date: 20120608
  Serious: Yes (Death, Other)
  Sender: FDA-Public Use
  Company Number: US-CELGENEUS-163-CCAZA-12032410

PATIENT

DRUGS (6)
  1. REVLIMID [Suspect]
     Dosage: 50 MILLIGRAM
     Route: 048
  2. REVLIMID [Suspect]
     Dosage: 10 MILLIGRAM
     Route: 048
  3. AZACITIDINE [Suspect]
     Dosage: 75 MILLIGRAM/SQ. METER
     Route: 041
  4. AZACITIDINE [Suspect]
     Dosage: 25 MILLIGRAM/SQ. METER
     Route: 041
  5. AZACITIDINE [Suspect]
     Dosage: 50 MILLIGRAM/SQ. METER
     Route: 041
  6. AZACITIDINE [Suspect]
     Dosage: 75 MILLIGRAM/SQ. METER
     Route: 041

REACTIONS (5)
  - RASH [None]
  - FATIGUE [None]
  - ACUTE MYELOID LEUKAEMIA [None]
  - HAEMATOTOXICITY [None]
  - FEBRILE NEUTROPENIA [None]
